FAERS Safety Report 24990720 (Version 1)
Quarter: 2025Q1

REPORT INFORMATION
  Report Type: Report from Study
  Country: US (occurrence: US)
  Receive Date: 20250220
  Receipt Date: 20250220
  Transmission Date: 20250409
  Serious: Yes (Hospitalization)
  Sender: EISAI
  Company Number: US-Eisai-EC-2025-184468

PATIENT
  Age: 62 Year
  Sex: Male

DRUGS (7)
  1. LENVIMA [Suspect]
     Active Substance: LENVATINIB
     Indication: Renal cancer
     Dates: start: 20231014, end: 20231117
  2. LENVIMA [Suspect]
     Active Substance: LENVATINIB
     Dates: start: 20231202, end: 20240317
  3. LENVIMA [Suspect]
     Active Substance: LENVATINIB
     Dates: start: 20240325
  4. LENVIMA [Suspect]
     Active Substance: LENVATINIB
     Dates: start: 20241005
  5. LENVIMA [Suspect]
     Active Substance: LENVATINIB
     Dates: start: 202410, end: 20250130
  6. EVEROLIMUS [Concomitant]
     Active Substance: EVEROLIMUS
  7. HYDROCORTISONE [Concomitant]
     Active Substance: HYDROCORTISONE

REACTIONS (1)
  - Impaired healing [Not Recovered/Not Resolved]
